FAERS Safety Report 8154811-X (Version None)
Quarter: 2012Q1

REPORT INFORMATION
  Report Type: 
  Country: None (occurrence: None)
  Receive Date: 20120221
  Receipt Date: 20120214
  Transmission Date: 20120608
  Serious: Yes (Hospitalization)
  Sender: FDA-Public Use
  Company Number: PHHY2012AU004252

PATIENT
  Sex: Male
  Weight: 84 kg

DRUGS (9)
  1. TAMSULOSIN HCL [Concomitant]
     Dosage: DAILY
     Route: 048
  2. ZOLEDRONOC ACID [Suspect]
     Indication: OSTEOPOROSIS
     Dosage: 5 MG
     Route: 042
     Dates: start: 20101221
  3. SANDOMIGRAN [Concomitant]
     Dosage: DAILY
     Route: 048
  4. LERCANIDIPINE [Concomitant]
     Indication: HYPERTENSION
     Dosage: UNK
  5. RAMIPRIL [Concomitant]
     Dosage: DAILY
     Route: 048
  6. OSTELIN [Concomitant]
     Indication: VITAMIN D DEFICIENCY
     Dosage: DAILY
     Route: 048
  7. LASIX [Concomitant]
     Indication: DIURETIC THERAPY
     Dosage: DAILY
     Route: 048
  8. WARFARIN SODIUM [Concomitant]
     Indication: ANTICOAGULANT THERAPY
     Dosage: DAILY
     Route: 048
  9. DURAGESIC-100 [Concomitant]
     Indication: ANALGESIC THERAPY
     Dosage: PATCH EVERY 3 DAYS
     Route: 058
     Dates: start: 20091112

REACTIONS (3)
  - HYPOKINESIA [None]
  - CEREBROVASCULAR ACCIDENT [None]
  - INCONTINENCE [None]
